FAERS Safety Report 23129870 (Version 1)
Quarter: 2023Q4

REPORT INFORMATION
  Report Type: Report from Study
  Country: CA (occurrence: CA)
  Receive Date: 20231031
  Receipt Date: 20231031
  Transmission Date: 20240109
  Serious: Yes (Disabling, Other)
  Sender: FDA-Public Use
  Company Number: CA-BAYER-2023A039825

PATIENT
  Sex: Male

DRUGS (1)
  1. EYLEA [Suspect]
     Active Substance: AFLIBERCEPT
     Indication: Diabetic retinal oedema
     Dosage: UNK UNK, ONCE, SOLUTION FOR INJECTION, STRENGTH- 40MG/ML
     Dates: start: 20230202, end: 20230202

REACTIONS (1)
  - Blindness [Recovered/Resolved]
